FAERS Safety Report 25323550 (Version 1)
Quarter: 2025Q2

REPORT INFORMATION
  Report Type: Spontaneous
  Country: US (occurrence: US)
  Receive Date: 20250516
  Receipt Date: 20250516
  Transmission Date: 20250716
  Serious: No
  Sender: GRIFOLS
  Company Number: US-IGSA-BIG0035030

PATIENT
  Age: 65 Year
  Sex: Female
  Weight: 52 kg

DRUGS (10)
  1. GAMUNEX-C [Suspect]
     Active Substance: HUMAN IMMUNOGLOBULIN G
     Indication: Dermatomyositis
     Route: 065
     Dates: start: 20240229
  2. GAMUNEX-C [Suspect]
     Active Substance: HUMAN IMMUNOGLOBULIN G
     Indication: Off label use
     Route: 065
     Dates: start: 20250501, end: 20250501
  3. GAMUNEX-C [Suspect]
     Active Substance: HUMAN IMMUNOGLOBULIN G
     Route: 065
     Dates: start: 20250501, end: 20250501
  4. PREDNISONE [Concomitant]
     Active Substance: PREDNISONE
     Indication: Premedication
  5. BENADRYL [Concomitant]
     Active Substance: DIPHENHYDRAMINE HYDROCHLORIDE
     Indication: Premedication
     Route: 048
  6. ABILIFY [Concomitant]
     Active Substance: ARIPIPRAZOLE
  7. NEURONTIN [Concomitant]
     Active Substance: GABAPENTIN
  8. ATIVAN [Concomitant]
     Active Substance: LORAZEPAM
  9. RHEUMATREX [Concomitant]
     Active Substance: METHOTREXATE SODIUM
  10. NEOMYCIN SULFATE\PREDNISOLONE SODIUM PHOSPHATE [Concomitant]
     Active Substance: NEOMYCIN SULFATE\PREDNISOLONE SODIUM PHOSPHATE

REACTIONS (6)
  - Flushing [Recovered/Resolved]
  - Back pain [Recovered/Resolved]
  - Dyspnoea [Recovered/Resolved]
  - Rash [Recovered/Resolved]
  - Urticaria [Recovered/Resolved]
  - Wheezing [Recovered/Resolved]

NARRATIVE: CASE EVENT DATE: 20250501
